FAERS Safety Report 5372118-0 (Version None)
Quarter: 2007Q2

REPORT INFORMATION
  Report Type: 
  Country: None (occurrence: None)
  Receive Date: 20070627
  Receipt Date: 20070620
  Transmission Date: 20071010
  Serious: Yes (Hospitalization)
  Sender: FDA-Public Use
  Company Number: FR-ASTRAZENECA-2007CG00946

PATIENT
  Age: 31 Year
  Sex: Male
  Weight: 62 kg

DRUGS (8)
  1. NEXIUM [Suspect]
     Indication: ABDOMINAL PAIN UPPER
     Route: 048
     Dates: start: 20070512, end: 20070516
  2. ROCALTROL [Concomitant]
     Route: 048
  3. DETENSIEL [Concomitant]
     Route: 048
  4. PYOSTACINE [Concomitant]
     Route: 048
     Dates: start: 20070427, end: 20070517
  5. STEROGYL [Concomitant]
     Route: 048
  6. RIVOTRIL [Concomitant]
     Route: 048
  7. KAYEXALATE [Concomitant]
  8. TRAMADOL HCL [Concomitant]

REACTIONS (3)
  - ANAEMIA [None]
  - NEUTROPENIA [None]
  - PYREXIA [None]
